FAERS Safety Report 10519512 (Version 1)
Quarter: 2014Q4

REPORT INFORMATION
  Report Type: Spontaneous
  Country: US (occurrence: None)
  Receive Date: 20141014
  Receipt Date: 20141014
  Transmission Date: 20150528
  Serious: Yes (Hospitalization)
  Sender: FDA-Public Use
  Company Number: None

PATIENT
  Age: 73 Year
  Sex: Female
  Weight: 53.3 kg

DRUGS (8)
  1. OFATUMUMAB [Suspect]
     Active Substance: OFATUMUMAB
     Indication: CHRONIC LYMPHOCYTIC LEUKAEMIA
     Route: 042
     Dates: start: 20140325, end: 20140908
  2. FERROUS SULFATE [Concomitant]
     Active Substance: FERROUS SULFATE\FERROUS SULFATE, DRIED
  3. METOPROLOL [Concomitant]
     Active Substance: METOPROLOL
  4. BACTRIM DS [Concomitant]
     Active Substance: SULFAMETHOXAZOLE\TRIMETHOPRIM
  5. VALGANCICLOVIR [Concomitant]
     Active Substance: VALGANCICLOVIR
  6. ALEMTUZUMAB [Suspect]
     Active Substance: ALEMTUZUMAB
     Indication: CHRONIC LYMPHOCYTIC LEUKAEMIA
     Route: 058
     Dates: start: 20140728, end: 20140908
  7. FLUOZETINE HCL [Concomitant]
  8. NEULASTA [Concomitant]
     Active Substance: PEGFILGRASTIM

REACTIONS (11)
  - Rash pruritic [None]
  - Nausea [None]
  - Dehydration [None]
  - Hypovolaemia [None]
  - Pyrexia [None]
  - Rash [None]
  - Leukopenia [None]
  - Rash erythematous [None]
  - Hypophagia [None]
  - Fatigue [None]
  - Hyponatraemia [None]

NARRATIVE: CASE EVENT DATE: 20141008
